FAERS Safety Report 7328402-4 (Version None)
Quarter: 2011Q1

REPORT INFORMATION
  Report Type: 
  Country: None (occurrence: None)
  Receive Date: 20110222
  Receipt Date: 20110217
  Transmission Date: 20110831
  Serious: Yes (Other)
  Sender: FDA-Public Use
  Company Number: 2011MA001518

PATIENT
  Age: 21 Month
  Sex: Male

DRUGS (1)
  1. IBUPROFEN [Suspect]
     Dosage: X1; PO
     Route: 048
     Dates: start: 20110217, end: 20110217

REACTIONS (2)
  - POISONING [None]
  - ACCIDENTAL DRUG INTAKE BY CHILD [None]
